FAERS Safety Report 21826716 (Version 2)
Quarter: 2024Q2

REPORT INFORMATION
  Report Type: Spontaneous
  Country: US (occurrence: US)
  Receive Date: 20230106
  Receipt Date: 20240506
  Transmission Date: 20240716
  Serious: No
  Sender: FDA-Public Use
  Company Number: US-BIOGEN-2023BI01179166

PATIENT
  Sex: Female

DRUGS (2)
  1. SPINRAZA [Suspect]
     Active Substance: NUSINERSEN
     Indication: Spinal muscular atrophy
     Route: 050
  2. SPINRAZA [Suspect]
     Active Substance: NUSINERSEN
     Dosage: 12 MG/5 ML INTRATHECALLY ONCE EVERY 4 MONTHS
     Route: 050

REACTIONS (3)
  - Asthenia [Unknown]
  - Fatigue [Unknown]
  - Thrombosis [Unknown]
